FAERS Safety Report 25031695 (Version 1)
Quarter: 2025Q1

REPORT INFORMATION
  Report Type: Spontaneous
  Country: US (occurrence: US)
  Receive Date: 20250303
  Receipt Date: 20250303
  Transmission Date: 20250409
  Serious: No
  Sender: PFIZER
  Company Number: US-PFIZER INC-PV202500024680

PATIENT
  Age: 63 Year
  Sex: Female

DRUGS (3)
  1. TUKYSA [Suspect]
     Active Substance: TUCATINIB
     Dosage: TAKE TWO TABLETS BY MOUTH TWICE DAILY
     Route: 048
  2. CRESTOR [Suspect]
     Active Substance: ROSUVASTATIN CALCIUM
  3. ROSUVASTATIN [Suspect]
     Active Substance: ROSUVASTATIN

REACTIONS (1)
  - Calcinosis [Unknown]
